FAERS Safety Report 13438631 (Version 3)
Quarter: 2017Q3

REPORT INFORMATION
  Report Type: Report from Study
  Country: US (occurrence: US)
  Receive Date: 20170412
  Receipt Date: 20170803
  Transmission Date: 20171127
  Serious: Yes (Other)
  Sender: FDA-Public Use
  Company Number: US-ACTELION-A-NJ2016-147172

PATIENT
  Age: 79 Year
  Sex: Female
  Weight: 75.28 kg

DRUGS (7)
  1. POTASSIUM [Concomitant]
     Active Substance: POTASSIUM
     Dosage: 40 MG, BID
     Dates: start: 201605
  2. ADEMPAS [Suspect]
     Active Substance: RIOCIGUAT
     Indication: PRODUCT USED FOR UNKNOWN INDICATION
     Dosage: 2.5 MG, TID
     Route: 065
     Dates: start: 201605
  3. OPSUMIT [Suspect]
     Active Substance: MACITENTAN
     Indication: PULMONARY HYPERTENSION
     Dosage: 10 MG, QD
     Route: 048
     Dates: start: 20161215, end: 20170328
  4. SIMVASTATIN. [Concomitant]
     Active Substance: SIMVASTATIN
     Dosage: 80 MG, QD
     Dates: start: 2014
  5. COUMADIN [Concomitant]
     Active Substance: WARFARIN SODIUM
     Dosage: 3 MG, QD
     Dates: start: 2013
  6. LASIX [Concomitant]
     Active Substance: FUROSEMIDE
     Dosage: 40 MG, QAM
     Dates: start: 201605
  7. LASIX [Concomitant]
     Active Substance: FUROSEMIDE
     Dosage: 20 MG, QAM
     Dates: start: 201605

REACTIONS (25)
  - Blood bilirubin increased [Unknown]
  - Blood count abnormal [Unknown]
  - Blood potassium decreased [Unknown]
  - Feeling abnormal [Unknown]
  - Dyspnoea [Recovered/Resolved]
  - Asthenia [Unknown]
  - Cough [Recovered/Resolved]
  - Sputum discoloured [Recovered/Resolved]
  - Vertigo [Unknown]
  - Epistaxis [Unknown]
  - Dizziness [Unknown]
  - Fluid retention [Unknown]
  - Anaemia [Unknown]
  - Swelling [Unknown]
  - Balance disorder [Unknown]
  - Hypotension [Unknown]
  - Wheezing [Recovered/Resolved]
  - Arterial haemorrhage [Unknown]
  - Fall [Unknown]
  - Malaise [Unknown]
  - Haemoglobin decreased [Unknown]
  - Fatigue [Unknown]
  - Bronchitis [Recovered/Resolved]
  - Blood magnesium decreased [Unknown]
  - Gait disturbance [Unknown]

NARRATIVE: CASE EVENT DATE: 2016
